FAERS Safety Report 16028217 (Version 2)
Quarter: 2019Q1

REPORT INFORMATION
  Report Type: Spontaneous
  Country: US (occurrence: US)
  Receive Date: 20190304
  Receipt Date: 20190308
  Transmission Date: 20190418
  Serious: Yes (Other)
  Sender: FDA-Public Use
  Company Number: US-BAUSCH-BL-2019-006016

PATIENT
  Age: 77 Year
  Sex: Female

DRUGS (1)
  1. GLUMETZA [Suspect]
     Active Substance: METFORMIN HYDROCHLORIDE
     Indication: DIABETES MELLITUS
     Route: 048
     Dates: start: 201812

REACTIONS (2)
  - Product colour issue [Unknown]
  - Dysentery [Not Recovered/Not Resolved]
